FAERS Safety Report 9785150 (Version 1)
Quarter: 2013Q4

REPORT INFORMATION
  Report Type: Spontaneous
  Country: CH (occurrence: CH)
  Receive Date: 20131227
  Receipt Date: 20131227
  Transmission Date: 20140711
  Serious: Yes (Other)
  Sender: FDA-Public Use
  Company Number: CH-ASTRAZENECA-2013SE92925

PATIENT
  Age: 0 Day
  Sex: Male
  Weight: 2.4 kg

DRUGS (3)
  1. ATACAND [Suspect]
     Route: 064
     Dates: start: 20121024, end: 20121112
  2. ATACAND PLUS [Suspect]
     Route: 064
     Dates: start: 20121017, end: 20121024
  3. LASIX [Suspect]
     Route: 064
     Dates: start: 20120928, end: 20120928

REACTIONS (4)
  - Premature baby [Unknown]
  - Neonatal tachypnoea [Recovered/Resolved]
  - Neonatal infection [Unknown]
  - Hypotension [Unknown]
